FAERS Safety Report 8363214-4 (Version None)
Quarter: 2012Q2

REPORT INFORMATION
  Report Type: 
  Country: None (occurrence: None)
  Receive Date: 20120516
  Receipt Date: 20120509
  Transmission Date: 20120825
  Serious: Yes (Other)
  Sender: FDA-Public Use
  Company Number: CA-PFIZER INC-2012114152

PATIENT
  Sex: Female

DRUGS (3)
  1. RAPAMUNE [Suspect]
  2. PROGRAF [Suspect]
     Indication: RENAL TRANSPLANT
     Dosage: 2 MG, 2X/DAY
  3. PREDNISONE [Concomitant]
     Dosage: 5 MG, UNK

REACTIONS (2)
  - ANAL CANCER STAGE IV [None]
  - METASTASES TO LIVER [None]
